FAERS Safety Report 22825507 (Version 2)
Quarter: 2025Q2

REPORT INFORMATION
  Report Type: Spontaneous
  Country: AU (occurrence: AU)
  Receive Date: 20230816
  Receipt Date: 20250624
  Transmission Date: 20250717
  Serious: Yes (Other)
  Sender: ORGANON
  Company Number: AU-ORGANON-O2308AUS001414

PATIENT
  Sex: Male

DRUGS (3)
  1. MIRTAZAPINE [Suspect]
     Active Substance: MIRTAZAPINE
  2. KALMA (ALPRAZOLAM) [Suspect]
     Active Substance: ALPRAZOLAM
  3. LUVOX [Suspect]
     Active Substance: FLUVOXAMINE MALEATE

REACTIONS (8)
  - Dystonia [Unknown]
  - Therapy cessation [Unknown]
  - Dysphagia [Unknown]
  - Fall [Unknown]
  - Hypoaesthesia [Unknown]
  - Intentional product misuse [Unknown]
  - Malaise [Unknown]
  - Weight decreased [Unknown]
